FAERS Safety Report 8950591 (Version 1)
Quarter: 2012Q4

REPORT INFORMATION
  Report Type: 
  Country: NO (occurrence: NO)
  Receive Date: 20121207
  Receipt Date: 20121207
  Transmission Date: 20130627
  Serious: Yes (Life-Threatening)
  Sender: FDA-Public Use
  Company Number: NO-009507513-1212NOR000020

PATIENT
  Age: 81 Year
  Sex: Female

DRUGS (1)
  1. ESTRIOL [Suspect]
     Indication: ATROPHIC VULVOVAGINITIS
     Dosage: 1 mg, qd
     Route: 048
     Dates: end: 20120911

REACTIONS (1)
  - Endometrial adenocarcinoma [Recovering/Resolving]
